FAERS Safety Report 6115857-6 (Version None)
Quarter: 2009Q1

REPORT INFORMATION
  Report Type: 
  Country: None (occurrence: None)
  Receive Date: 20090311
  Receipt Date: 20090224
  Transmission Date: 20090719
  Serious: Yes (Hospitalization, Other)
  Sender: FDA-Public Use
  Company Number: 0902-036

PATIENT
  Age: 12 Year
  Sex: Female
  Weight: 35.0177 kg

DRUGS (4)
  1. ARCALYST [Suspect]
     Indication: JUVENILE ARTHRITIS
     Dosage: 80 MG, QWK, SUBCUTANEOUS
     Route: 058
     Dates: start: 20080101
  2. METHOTREXARE SODIUM [Suspect]
     Indication: JUVENILE ARTHRITIS
     Dosage: 15 MG, QWK, ORAL
     Route: 048
  3. PREDNISONE [Suspect]
     Indication: JUVENILE ARTHRITIS
     Dosage: 20 MG, QD, ORAL
     Route: 048
  4. NAPROSYN [Concomitant]

REACTIONS (4)
  - JUVENILE ARTHRITIS [None]
  - LARYNGITIS VIRAL [None]
  - MYOFASCITIS [None]
  - POLYARTHRITIS [None]
